FAERS Safety Report 10257511 (Version 1)
Quarter: 2014Q2

REPORT INFORMATION
  Report Type: Spontaneous
  Country: US (occurrence: None)
  Receive Date: 20140623
  Receipt Date: 20140623
  Transmission Date: 20141212
  Serious: No
  Sender: FDA-Public Use
  Company Number: None

PATIENT
  Age: 51 Year
  Sex: 0

DRUGS (3)
  1. OXYCODONE/ACETAMINOPHEN 5-325 MG [Suspect]
     Indication: KNEE ARTHROPLASTY
     Dosage: 1 PILL THREE TIMES DAILY TAKEN BY MOUTH
     Route: 048
  2. OXYCODONE/ACETAMINOPHEN 5-325 MG [Suspect]
     Indication: PAIN MANAGEMENT
     Dosage: 1 PILL THREE TIMES DAILY TAKEN BY MOUTH
     Route: 048
  3. OXYCODONE/ACETAMINOPHEN 5-325 MG [Suspect]
     Indication: BONE OPERATION
     Dosage: 1 PILL THREE TIMES DAILY TAKEN BY MOUTH
     Route: 048

REACTIONS (10)
  - Headache [None]
  - No therapeutic response [None]
  - Rheumatoid arthritis [None]
  - Gastrointestinal disorder [None]
  - Respiratory disorder [None]
  - Palpitations [None]
  - Depression [None]
  - Crying [None]
  - Aggression [None]
  - Product substitution issue [None]
